FAERS Safety Report 5014299-4 (Version None)
Quarter: 2006Q2

REPORT INFORMATION
  Report Type: 
  Country: None (occurrence: None)
  Receive Date: 20060414
  Receipt Date: 20051227
  Transmission Date: 20061013
  Serious: No
  Sender: FDA-Public Use
  Company Number: 2005SP004535

PATIENT
  Age: 38 Year
  Sex: Male

DRUGS (1)
  1. LUNESTA [Suspect]
     Dosage: 3 MG;ORAL
     Route: 048
     Dates: start: 20051201

REACTIONS (1)
  - DYSGEUSIA [None]
